FAERS Safety Report 13329115 (Version 3)
Quarter: 2017Q2

REPORT INFORMATION
  Report Type: Report from Study
  Country: None (occurrence: IL)
  Receive Date: 20170313
  Receipt Date: 20170405
  Transmission Date: 20170830
  Serious: Yes (Hospitalization)
  Sender: FDA-Public Use
  Company Number: IL-ABBVIE-17K-082-1897120-00

PATIENT
  Age: 15 Year
  Sex: Female

DRUGS (3)
  1. HUMIRA [Suspect]
     Active Substance: ADALIMUMAB
     Indication: RASMUSSEN ENCEPHALITIS
     Route: 058
     Dates: start: 20161221
  2. DEPALEPT [Concomitant]
     Active Substance: VALPROIC ACID
     Indication: PRODUCT USED FOR UNKNOWN INDICATION
  3. TRILEPTIN [Concomitant]
     Active Substance: OXCARBAZEPINE
     Indication: PRODUCT USED FOR UNKNOWN INDICATION

REACTIONS (10)
  - Haemoglobin decreased [Unknown]
  - Vomiting [Not Recovered/Not Resolved]
  - Influenza [Unknown]
  - Drug ineffective for unapproved indication [Unknown]
  - Asthenia [Not Recovered/Not Resolved]
  - Immunodeficiency [Unknown]
  - Viral infection [Unknown]
  - Dizziness [Not Recovered/Not Resolved]
  - Pyrexia [Not Recovered/Not Resolved]
  - Nausea [Not Recovered/Not Resolved]

NARRATIVE: CASE EVENT DATE: 201702
